FAERS Safety Report 10923190 (Version 1)
Quarter: 2015Q1

REPORT INFORMATION
  Report Type: Spontaneous
  Country: TR (occurrence: TR)
  Receive Date: 20150317
  Receipt Date: 20150317
  Transmission Date: 20150721
  Serious: Yes (Hospitalization)
  Sender: FDA-Public Use
  Company Number: TR-ELI_LILLY_AND_COMPANY-TR201503004832

PATIENT
  Age: 23 Year
  Sex: Female
  Weight: 69 kg

DRUGS (21)
  1. NIDILAT [Concomitant]
     Indication: BLOOD PRESSURE
     Dosage: 40 MG, BID
  2. OXYGEN. [Concomitant]
     Active Substance: OXYGEN
     Dosage: 33 %, UNKNOWN
  3. ATRACURIUM [Concomitant]
     Active Substance: ATRACURIUM
     Dosage: 10 MG, UNKNOWN
     Route: 042
  4. NEOSTIGMINE [Concomitant]
     Active Substance: NEOSTIGMINE
     Dosage: 1 MG, UNKNOWN
  5. ATROPINE [Concomitant]
     Active Substance: ATROPINE
     Dosage: 0.5 MG, UNKNOWN
  6. DICLOFENAC SODIUM. [Concomitant]
     Active Substance: DICLOFENAC SODIUM
     Indication: ANALGESIC THERAPY
     Dosage: 20 MG, UNKNOWN
  7. HUMULIN R [Suspect]
     Active Substance: INSULIN HUMAN
     Dosage: 4 U, QD
  8. HUMULIN R [Suspect]
     Active Substance: INSULIN HUMAN
     Dosage: 16 U, UNKNOWN
  9. HUMULIN N [Suspect]
     Active Substance: INSULIN HUMAN
     Indication: BLOOD GLUCOSE INCREASED
     Dosage: 6 U, QD
  10. OXYGEN. [Concomitant]
     Active Substance: OXYGEN
     Dosage: 100 %, UNKNOWN
  11. FENTANYL. [Concomitant]
     Active Substance: FENTANYL
     Dosage: .001 MG/KG, UNKNOWN
     Route: 042
  12. DESFLURANE. [Concomitant]
     Active Substance: DESFLURANE
     Indication: ANAESTHESIA
     Dosage: 3 %, UNKNOWN
  13. NITROUS OXIDE W/OXYGEN [Concomitant]
     Active Substance: NITROUS OXIDE\OXYGEN
     Indication: ANAESTHESIA
     Dosage: 50 %, UNKNOWN
  14. DEXTROSE. [Concomitant]
     Active Substance: DEXTROSE
     Dosage: 1000 ML, UNKNOWN
     Route: 042
  15. HUMULIN R [Suspect]
     Active Substance: INSULIN HUMAN
     Indication: BLOOD GLUCOSE INCREASED
     Dosage: 6 U, QD
  16. HUMULIN R [Suspect]
     Active Substance: INSULIN HUMAN
     Dosage: 4 U, QD
  17. NITROFURANTOIN. [Concomitant]
     Active Substance: NITROFURANTOIN
     Dosage: 50 MG, TID
  18. SUCCINYLCHOLINE [Concomitant]
     Active Substance: SUCCINYLCHOLINE
     Indication: INDUCTION OF ANAESTHESIA
     Dosage: 1 MG/KG, UNK
  19. OXYTOCIN. [Concomitant]
     Active Substance: OXYTOCIN
     Dosage: 20 IU, UNKNOWN
     Route: 042
  20. NACL [Concomitant]
     Active Substance: SODIUM CHLORIDE
     Dosage: 1000 ML, UNKNOWN
     Route: 042
  21. PROPOFOL. [Concomitant]
     Active Substance: PROPOFOL
     Indication: INDUCTION OF ANAESTHESIA
     Dosage: 2 MG/KG, UNK

REACTIONS (2)
  - Premature labour [Unknown]
  - Maternal exposure during pregnancy [Unknown]
